FAERS Safety Report 6197244-8 (Version None)
Quarter: 2009Q2

REPORT INFORMATION
  Report Type: 
  Country: None (occurrence: None)
  Receive Date: 20090521
  Receipt Date: 20080401
  Transmission Date: 20091009
  Serious: Yes (Hospitalization, Other)
  Sender: FDA-Public Use
  Company Number: US-ASTRAZENECA-2007UW22224

PATIENT
  Age: 409 Month
  Sex: Female
  Weight: 63 kg

DRUGS (19)
  1. SEROQUEL [Suspect]
     Indication: DEPRESSION
     Route: 048
     Dates: start: 20021030, end: 20070701
  2. SEROQUEL [Suspect]
     Indication: BIPOLAR DISORDER
     Route: 048
     Dates: start: 20021030, end: 20070701
  3. SEROQUEL [Suspect]
     Indication: HALLUCINATION
     Route: 048
     Dates: start: 20021030, end: 20070701
  4. SEROQUEL [Suspect]
     Dosage: 25 TO 800 MG
     Route: 048
     Dates: start: 20021030
  5. SEROQUEL [Suspect]
     Dosage: 25 TO 800 MG
     Route: 048
     Dates: start: 20021030
  6. SEROQUEL [Suspect]
     Dosage: 25 TO 800 MG
     Route: 048
     Dates: start: 20021030
  7. NAVANE [Concomitant]
     Route: 048
  8. DESYREL [Concomitant]
  9. EFFEXOR XR [Concomitant]
     Route: 048
  10. LIBRIUM [Concomitant]
     Route: 048
  11. ATIVAN [Concomitant]
     Dosage: 1 TO 2 MG
     Route: 048
  12. PAXIL [Concomitant]
     Indication: DEPRESSION
     Dosage: 20 TO 37.5 MG
     Route: 048
  13. AMBIEN [Concomitant]
  14. VISTARIL [Concomitant]
     Dosage: 25 TO 50 MG
     Route: 048
  15. WELLBUTRIN XL [Concomitant]
     Dosage: 150 TO 450 MG
     Route: 048
  16. LAMICTAL [Concomitant]
     Dosage: 25 TO 100 MG
     Route: 048
  17. SINEQUAN [Concomitant]
     Indication: SLEEP DISORDER
  18. SINEQUAN [Concomitant]
     Indication: AGITATION
  19. INH [Concomitant]
     Route: 048

REACTIONS (13)
  - ALCOHOL POISONING [None]
  - GENERALISED ANXIETY DISORDER [None]
  - HALLUCINATION, AUDITORY [None]
  - HYPERGLYCAEMIA [None]
  - INSOMNIA [None]
  - IRRITABILITY [None]
  - LETHARGY [None]
  - MAJOR DEPRESSION [None]
  - MIGRAINE [None]
  - OVERDOSE [None]
  - SUBSTANCE ABUSE [None]
  - SUICIDE ATTEMPT [None]
  - UPPER RESPIRATORY TRACT INFECTION [None]
